FAERS Safety Report 10132678 (Version 1)
Quarter: 2014Q2

REPORT INFORMATION
  Report Type: Spontaneous
  Country: US (occurrence: US)
  Receive Date: 20140428
  Receipt Date: 20140428
  Transmission Date: 20141212
  Serious: No
  Sender: FDA-Public Use
  Company Number: US-MALLINCKRODT-T201304538

PATIENT
  Age: 69 Year
  Sex: Female

DRUGS (8)
  1. HYDROCODONE/ACETAMINOPHEN [Suspect]
     Indication: PAIN
     Dosage: 10/325 MG, QID
     Dates: end: 20130919
  2. SAVELLA [Suspect]
     Indication: FIBROMYALGIA
     Dosage: 50 MG, BID
     Route: 048
     Dates: start: 20130909, end: 20130923
  3. SAVELLA [Suspect]
     Dosage: 12.5 MG, QD
     Route: 048
     Dates: start: 20130902, end: 20130902
  4. SAVELLA [Suspect]
     Dosage: 12.5 MG, BID
     Route: 048
     Dates: start: 20130903, end: 20130904
  5. SAVELLA [Suspect]
     Dosage: 25 MG, BID
     Route: 048
     Dates: start: 20130905, end: 20130908
  6. SAVELLA [Suspect]
     Dosage: 25 MG, BID
     Route: 048
     Dates: start: 20130924
  7. CLONAZEPAM [Concomitant]
     Indication: ANXIETY
     Dosage: 0.5 MG, QD
  8. TRAZODONE [Concomitant]
     Indication: FIBROMYALGIA
     Dosage: 100 MG, QD

REACTIONS (6)
  - Drug withdrawal syndrome [Recovered/Resolved]
  - Muscle rigidity [Recovered/Resolved]
  - Depressed mood [Recovered/Resolved]
  - Confusional state [Recovered/Resolved]
  - Vision blurred [Recovered/Resolved]
  - Headache [Recovered/Resolved]
